FAERS Safety Report 24978497 (Version 1)
Quarter: 2025Q1

REPORT INFORMATION
  Report Type: Spontaneous
  Country: FR (occurrence: FR)
  Receive Date: 20250217
  Receipt Date: 20250217
  Transmission Date: 20250409
  Serious: Yes (Hospitalization, Other)
  Sender: CIPLA
  Company Number: FR-AFSSAPS-DJ2025000210

PATIENT

DRUGS (5)
  1. VALGANCICLOVIR [Suspect]
     Active Substance: VALGANCICLOVIR
     Indication: Antiviral prophylaxis
     Route: 048
     Dates: start: 20240815, end: 20250125
  2. CELLCEPT [Suspect]
     Active Substance: MYCOPHENOLATE MOFETIL
     Indication: Renal transplant
     Dosage: 2 GRAM, QD (2G/J)
     Route: 048
     Dates: start: 20240814, end: 20241122
  3. CELLCEPT [Suspect]
     Active Substance: MYCOPHENOLATE MOFETIL
     Dosage: 1 GRAM, QD (1G/J)
     Route: 048
     Dates: start: 20241123, end: 20241201
  4. CELLCEPT [Suspect]
     Active Substance: MYCOPHENOLATE MOFETIL
     Dosage: 2 GRAM, QD (2G/J)
     Route: 048
     Dates: start: 20241202, end: 20250122
  5. CELLCEPT [Suspect]
     Active Substance: MYCOPHENOLATE MOFETIL
     Dosage: 1 GRAM, QD (1G/J)
     Route: 048
     Dates: start: 20250123, end: 20250126

REACTIONS (1)
  - Granulocytes maturation arrest [Recovered/Resolved]

NARRATIVE: CASE EVENT DATE: 20250122
